FAERS Safety Report 10098725 (Version 1)
Quarter: 2014Q2

REPORT INFORMATION
  Report Type: Spontaneous
  Country: US (occurrence: None)
  Receive Date: 20140417
  Receipt Date: 20140417
  Transmission Date: 20141212
  Serious: No
  Sender: FDA-Public Use
  Company Number: MCN US-145386

PATIENT
  Age: 27 Year
  Sex: Female
  Weight: 83.6 kg

DRUGS (2)
  1. VARIZIG [Suspect]
     Indication: ANTIVIRAL PROPHYLAXIS
     Dosage: 625 IU TOTAL INTRAMUSCULAR
     Route: 030
     Dates: start: 20121116, end: 20131116
  2. PRENATAL VITAMINS [Concomitant]

REACTIONS (2)
  - Dermatitis contact [None]
  - Maternal exposure during pregnancy [None]
